FAERS Safety Report 7942325-9 (Version None)
Quarter: 2011Q4

REPORT INFORMATION
  Report Type: 
  Country: None (occurrence: None)
  Receive Date: 20111128
  Receipt Date: 20111118
  Transmission Date: 20120403
  Serious: Yes (Hospitalization, Other)
  Sender: FDA-Public Use
  Company Number: US-BAYER-2011-006773

PATIENT
  Age: 26 Year
  Sex: Female
  Weight: 53.515 kg

DRUGS (4)
  1. YASMIN [Suspect]
     Indication: CONTRACEPTION
     Dosage: UNK
     Route: 048
     Dates: start: 20080601, end: 20080701
  2. NAPROXEN [Concomitant]
  3. IBUPROFEN [Concomitant]
  4. CYMBALTA [Concomitant]

REACTIONS (7)
  - DYSPNOEA [None]
  - PAIN [None]
  - PULMONARY INFARCTION [None]
  - PULMONARY EMBOLISM [None]
  - GASTRIC ULCER [None]
  - EMOTIONAL DISTRESS [None]
  - FEAR OF DEATH [None]
